FAERS Safety Report 17360229 (Version 1)
Quarter: 2020Q1

REPORT INFORMATION
  Report Type: Spontaneous
  Country: FR (occurrence: FR)
  Receive Date: 20200203
  Receipt Date: 20200203
  Transmission Date: 20200409
  Serious: Yes (Other)
  Sender: FDA-Public Use
  Company Number: FR-ACCORD-171515

PATIENT
  Age: 76 Year
  Sex: Male

DRUGS (13)
  1. DAPTOMYCIN. [Suspect]
     Active Substance: DAPTOMYCIN
     Indication: INTERVERTEBRAL DISCITIS
     Route: 042
     Dates: start: 20191128, end: 20191212
  2. SINEMET LP [Concomitant]
     Active Substance: CARBIDOPA\LEVODOPA
     Route: 048
  3. CIPROFLOXACIN. [Suspect]
     Active Substance: CIPROFLOXACIN
     Indication: INTERVERTEBRAL DISCITIS
     Route: 042
     Dates: start: 20191128, end: 20191214
  4. COLCHICINE. [Concomitant]
     Active Substance: COLCHICINE
     Route: 048
  5. NEUPRO [Concomitant]
     Active Substance: ROTIGOTINE
     Dosage: STRENGTH:  2 MG / 24 H
     Route: 062
  6. ASPIRINE PROTECT [Concomitant]
     Active Substance: ASPIRIN
     Route: 048
  7. JOSIR L.P. [Concomitant]
     Dosage: STRENGTH: 0.4 MG PROLONGED-RELEASE CAPSULE MICROGRANULES
     Route: 048
  8. MEROPENEM. [Suspect]
     Active Substance: MEROPENEM
     Indication: INTERVERTEBRAL DISCITIS
     Route: 042
     Dates: start: 20191109, end: 20191214
  9. LANSOPRAZOLE. [Concomitant]
     Active Substance: LANSOPRAZOLE
     Route: 048
  10. LOVENOX [Concomitant]
     Active Substance: ENOXAPARIN SODIUM
     Route: 058
     Dates: start: 20191104
  11. PARACETAMOL [Concomitant]
     Active Substance: ACETAMINOPHEN
     Route: 048
  12. MODOPAR [Concomitant]
     Active Substance: BENSERAZIDE HYDROCHLORIDE\LEVODOPA
     Route: 048
  13. CARDENSIEL [Concomitant]
     Active Substance: BISOPROLOL FUMARATE
     Dosage: STRENGTH: 2.5 MG, SCORED FILM-COATED TABLET
     Route: 048

REACTIONS (2)
  - Stevens-Johnson syndrome [Recovered/Resolved]
  - Neutropenia [Recovered/Resolved]

NARRATIVE: CASE EVENT DATE: 20191213
